FAERS Safety Report 20673311 (Version 1)
Quarter: 2022Q2

REPORT INFORMATION
  Report Type: Spontaneous
  Country: US (occurrence: None)
  Receive Date: 20220403
  Receipt Date: 20220403
  Transmission Date: 20220720
  Serious: Yes (Hospitalization)
  Sender: FDA-Public Use
  Company Number: None

PATIENT
  Age: 82 Year
  Sex: Male
  Weight: 64 kg

DRUGS (1)
  1. CEFTRIAXONE [Suspect]
     Active Substance: CEFTRIAXONE
     Indication: Bacteraemia
     Dosage: FREQUENCY : DAILY;?
     Route: 042
     Dates: start: 20220131, end: 20220307

REACTIONS (7)
  - Infusion related reaction [None]
  - Chills [None]
  - Dyspnoea [None]
  - Pleural effusion [None]
  - Intra-abdominal fluid collection [None]
  - Pyrexia [None]
  - Adverse drug reaction [None]

NARRATIVE: CASE EVENT DATE: 20220303
